FAERS Safety Report 4346121-3 (Version None)
Quarter: 2004Q1

REPORT INFORMATION
  Report Type: 
  Country: None (occurrence: None)
  Receive Date: 20040325
  Receipt Date: 20031229
  Transmission Date: 20041129
  Serious: No
  Sender: FDA-Public Use
  Company Number: USA031254370

PATIENT
  Age: 75 Year
  Sex: Female

DRUGS (4)
  1. FORTEO [Suspect]
     Indication: OSTEOPOROSIS
     Dosage: 20 UG/DAY
     Dates: start: 20031205
  2. VIACTIV [Concomitant]
  3. TUMS ULTRA (CALCIUM CARBONATE) [Concomitant]
  4. VIOXX [Concomitant]

REACTIONS (6)
  - DIZZINESS [None]
  - FLUID RETENTION [None]
  - JOINT SWELLING [None]
  - NAUSEA [None]
  - PAIN IN EXTREMITY [None]
  - SENSATION OF HEAVINESS [None]
